FAERS Safety Report 7019289-8 (Version None)
Quarter: 2010Q3

REPORT INFORMATION
  Report Type: 
  Country: None (occurrence: None)
  Receive Date: 20100924
  Receipt Date: 20100910
  Transmission Date: 20110219
  Serious: Yes (Life-Threatening)
  Sender: FDA-Public Use
  Company Number: 201009AGG00956

PATIENT
  Age: 48 Year
  Sex: Male

DRUGS (5)
  1. TIROFIBAN HYDROCHLORIDE (AGGRASTAT (TIROFIBAN HCL)) [Suspect]
     Indication: INFARCTION
     Dosage: (INTRAVENOUS)
     Route: 042
     Dates: start: 20100809, end: 20100809
  2. ASPIRIN [Concomitant]
  3. CLOPIDOGREL BISULFATE [Concomitant]
  4. ENOXAPARIN SODIUM [Concomitant]
  5. ESOMEPRAZOL /01479301/ [Concomitant]

REACTIONS (1)
  - ANAPHYLACTIC REACTION [None]
